FAERS Safety Report 16831745 (Version 6)
Quarter: 2022Q2

REPORT INFORMATION
  Report Type: Report from Study
  Country: US (occurrence: None)
  Receive Date: 20190920
  Receipt Date: 20220510
  Transmission Date: 20220721
  Serious: Yes (Hospitalization, Other)
  Sender: FDA-Public Use
  Company Number: US-ROCHE-2407941

PATIENT
  Age: 77 Year
  Sex: Male
  Weight: 83.3 kg

DRUGS (2)
  1. ATEZOLIZUMAB [Suspect]
     Active Substance: ATEZOLIZUMAB
     Indication: Cholangiocarcinoma
     Dosage: MOST RECENT DOSE : 10/JUL/2018
     Route: 042
     Dates: start: 20180710
  2. COBIMETINIB [Suspect]
     Active Substance: COBIMETINIB
     Indication: Cholangiocarcinoma
     Dosage: MOST RECENT DOSE : 22/JUL/2018
     Route: 048
     Dates: start: 20180710

REACTIONS (6)
  - Syncope [Recovered/Resolved]
  - Presyncope [Recovered/Resolved]
  - Diarrhoea [Unknown]
  - Femur fracture [Unknown]
  - Atrial fibrillation [Recovered/Resolved]
  - Femur fracture [Unknown]

NARRATIVE: CASE EVENT DATE: 20180723
